FAERS Safety Report 19259223 (Version 1)
Quarter: 2021Q2

REPORT INFORMATION
  Report Type: Spontaneous
  Country: US (occurrence: US)
  Receive Date: 20210514
  Receipt Date: 20210514
  Transmission Date: 20210717
  Serious: Yes (Hospitalization, Other)
  Sender: FDA-Public Use
  Company Number: None

PATIENT
  Sex: Female

DRUGS (3)
  1. PREGABLIN [Concomitant]
     Active Substance: PREGABALIN
  2. XOLAIR [Suspect]
     Active Substance: OMALIZUMAB
     Indication: ANAPHYLACTIC SHOCK
     Dosage: ?          OTHER FREQUENCY:EVERY 28 DAYS;?
     Route: 058
     Dates: start: 20210511
  3. ALBUTEROL AER HFA [Concomitant]

REACTIONS (5)
  - Paraesthesia oral [None]
  - Swollen tongue [None]
  - Autoimmune disorder [None]
  - Lip swelling [None]
  - Hypersensitivity [None]
